FAERS Safety Report 9036603 (Version 1)
Quarter: 2013Q1

REPORT INFORMATION
  Report Type: Spontaneous
  Country: US (occurrence: None)
  Receive Date: 20130117
  Receipt Date: 20130117
  Transmission Date: 20140127
  Serious: Yes (Life-Threatening, Hospitalization)
  Sender: FDA-Public Use
  Company Number: None

PATIENT
  Age: 87 Year
  Sex: Male
  Weight: 70 kg

DRUGS (1)
  1. PROVIGIL [Suspect]
     Route: 048
     Dates: start: 20130115, end: 20130115

REACTIONS (8)
  - Urticaria [None]
  - Lip swelling [None]
  - Eyelid oedema [None]
  - Urticaria [None]
  - Pruritus [None]
  - Dysphonia [None]
  - Pharyngeal oedema [None]
  - Chest discomfort [None]
